FAERS Safety Report 5935906-5 (Version None)
Quarter: 2008Q4

REPORT INFORMATION
  Report Type: 
  Country: None (occurrence: None)
  Receive Date: 20081030
  Receipt Date: 20080211
  Transmission Date: 20090506
  Serious: No
  Sender: FDA-Public Use
  Company Number: A0710049A

PATIENT
  Age: 53 Year
  Sex: Male

DRUGS (3)
  1. IMITREX [Suspect]
     Indication: MIGRAINE
     Route: 045
  2. IMITREX [Suspect]
     Route: 048
  3. AXERT [Concomitant]
     Indication: MIGRAINE

REACTIONS (2)
  - ADVERSE DRUG REACTION [None]
  - DRUG INEFFECTIVE [None]
